FAERS Safety Report 13431778 (Version 2)
Quarter: 2017Q3

REPORT INFORMATION
  Report Type: Spontaneous
  Country: US (occurrence: US)
  Receive Date: 20170412
  Receipt Date: 20170707
  Transmission Date: 20171127
  Serious: Yes (Death, Hospitalization)
  Sender: FDA-Public Use
  Company Number: US-JNJFOC-20170302298

PATIENT
  Age: 69 Year
  Sex: Male

DRUGS (4)
  1. XARELTO [Suspect]
     Active Substance: RIVAROXABAN
     Indication: THROMBOSIS PROPHYLAXIS
     Dosage: 15-20 MG
     Route: 048
     Dates: start: 201205, end: 20160228
  2. XARELTO [Suspect]
     Active Substance: RIVAROXABAN
     Indication: ATRIAL FIBRILLATION
     Dosage: 15-20 MG
     Route: 048
     Dates: start: 201205, end: 20160228
  3. XARELTO [Suspect]
     Active Substance: RIVAROXABAN
     Indication: ANTICOAGULANT THERAPY
     Dosage: 15-20 MG
     Route: 048
     Dates: start: 201205, end: 20160228
  4. XARELTO [Suspect]
     Active Substance: RIVAROXABAN
     Indication: CARDIAC PACEMAKER INSERTION
     Dosage: 15-20 MG
     Route: 048
     Dates: start: 201205, end: 20160228

REACTIONS (4)
  - Cerebral haemorrhage [Fatal]
  - Haemorrhage [Unknown]
  - Haemorrhagic stroke [Fatal]
  - Subarachnoid haemorrhage [Unknown]

NARRATIVE: CASE EVENT DATE: 20160202
